FAERS Safety Report 11795339 (Version 2)
Quarter: 2016Q1

REPORT INFORMATION
  Report Type: Spontaneous
  Country: PE (occurrence: PE)
  Receive Date: 20151202
  Receipt Date: 20160219
  Transmission Date: 20160525
  Serious: Yes (Other)
  Sender: FDA-Public Use
  Company Number: PE-PFIZER INC-2015411270

PATIENT
  Age: 79 Year
  Sex: Female

DRUGS (1)
  1. ACCUPRIL [Suspect]
     Active Substance: QUINAPRIL HYDROCHLORIDE
     Indication: HYPERTENSION
     Dosage: 2 DF, UNK
     Dates: end: 20151111

REACTIONS (2)
  - Cerebrovascular accident [Recovered/Resolved]
  - Walking disability [Recovering/Resolving]

NARRATIVE: CASE EVENT DATE: 201509
